FAERS Safety Report 8065933-6 (Version None)
Quarter: 2012Q1

REPORT INFORMATION
  Report Type: 
  Country: None (occurrence: None)
  Receive Date: 20120124
  Receipt Date: 20120117
  Transmission Date: 20120608
  Serious: Yes (Other)
  Sender: FDA-Public Use
  Company Number: IT-PFIZER INC-2012013175

PATIENT
  Sex: Male
  Weight: 3.079 kg

DRUGS (1)
  1. EPIRUBICIN HYDROCHLORIDE [Suspect]
     Indication: BREAST CANCER
     Route: 064

REACTIONS (3)
  - INFECTION [None]
  - MATERNAL EXPOSURE TIMING UNSPECIFIED [None]
  - VENTRICULAR HYPOKINESIA [None]
